FAERS Safety Report 5776000-6 (Version None)
Quarter: 2008Q2

REPORT INFORMATION
  Report Type: 
  Country: None (occurrence: None)
  Receive Date: 20080617
  Receipt Date: 20080612
  Transmission Date: 20081010
  Serious: Yes (Death)
  Sender: FDA-Public Use
  Company Number: DE-ABBOTT-08P-062-0457233-00

PATIENT
  Sex: Male
  Weight: 60 kg

DRUGS (4)
  1. KALETRA [Suspect]
     Indication: HIV INFECTION
     Route: 048
     Dates: start: 20060817, end: 20080501
  2. SAQUINAVIR MESILATE [Concomitant]
     Indication: HIV INFECTION
     Route: 048
     Dates: start: 20060817, end: 20080501
  3. COTRIM [Concomitant]
     Indication: ANTIFUNGAL PROPHYLAXIS
     Route: 048
     Dates: start: 20060817, end: 20080501
  4. FENTANYL-PLASTER [Concomitant]
     Indication: PAIN MANAGEMENT
     Dates: start: 20071121

REACTIONS (1)
  - ANAL CANCER METASTATIC [None]
